FAERS Safety Report 9789871 (Version 2)
Quarter: 2014Q1

REPORT INFORMATION
  Report Type: Report from Study
  Country: CA (occurrence: CA)
  Receive Date: 20131231
  Receipt Date: 20140116
  Transmission Date: 20141002
  Serious: Yes (Other)
  Sender: FDA-Public Use
  Company Number: CA-PFIZER INC-2013370227

PATIENT
  Age: 32 Year
  Sex: Male
  Weight: 53.7 kg

DRUGS (17)
  1. TOVIAZ [Suspect]
     Indication: CYSTITIS ULCERATIVE
     Dosage: 4-8MG DAILY
     Route: 048
     Dates: start: 20121101, end: 20130115
  2. DETROL LA [Suspect]
     Indication: CYSTITIS ULCERATIVE
     Dosage: 4 MG, 1X/DAY
     Route: 048
     Dates: start: 20120516, end: 20120605
  3. DETROL LA [Suspect]
     Dosage: 4 MG, 1X/DAY
     Route: 048
     Dates: start: 20121101, end: 20130325
  4. TRUVADA [Suspect]
     Indication: HIV INFECTION
     Dosage: 1 DF, 1X/DAY (200/300MG)
     Route: 048
     Dates: start: 20120315, end: 20130508
  5. MARAVIROC [Suspect]
     Indication: HIV INFECTION
     Dosage: 1 DF, 2X/DAY
     Route: 048
     Dates: start: 20120315, end: 20130508
  6. RALTEGRAVIR [Suspect]
     Indication: HIV INFECTION
     Dosage: 1 DF, 2X/DAY
     Route: 048
     Dates: start: 20120315, end: 20130508
  7. ELMIRON [Suspect]
     Indication: CYSTITIS
     Dosage: 100 MG, 2X/DAY
     Route: 048
     Dates: start: 20120711, end: 20130228
  8. ELMIRON [Suspect]
     Dosage: 100 MG, 2X/DAY
     Route: 048
     Dates: start: 20130305, end: 20130325
  9. ELMIRON [Suspect]
     Dosage: 100 MG, 2X/DAY
     Route: 048
     Dates: start: 20130424, end: 20130527
  10. ENABLEX [Suspect]
     Indication: PROSTATITIS
     Dosage: 7.5 MG, 1X/DAY
     Dates: start: 20121101, end: 20130201
  11. ENABLEX [Suspect]
     Dosage: 7.5 MG, 1X/DAY
     Dates: start: 20120516, end: 20120605
  12. CYMBALTA [Suspect]
     Indication: CYSTITIS ULCERATIVE
     Dosage: 600 MG, 1X/DAY
     Dates: start: 20121101, end: 20130325
  13. FLOXIN ^JANSSEN-ORTHO^ [Concomitant]
     Dosage: 400 MG, 2X/DAY
     Dates: start: 20120718, end: 20120808
  14. GABAPENTIN [Concomitant]
     Dosage: 100 MG, AS NEEDED
     Dates: start: 20120830, end: 20121210
  15. OXYCOCET [Concomitant]
     Indication: PAIN MANAGEMENT
     Dosage: 5 MG, AS NEEDED
     Dates: start: 20120327
  16. ATIVAN [Concomitant]
     Dosage: 2 MG, 2X/DAY
     Dates: start: 20120225, end: 20130308
  17. WELLBUTRIN [Concomitant]
     Dosage: 150 MG, 1X/DAY
     Dates: start: 20120225, end: 20130313

REACTIONS (2)
  - Neutropenia [Recovered/Resolved]
  - Neutropenia [Recovered/Resolved]
